FAERS Safety Report 6916347-0 (Version None)
Quarter: 2010Q3

REPORT INFORMATION
  Report Type: 
  Country: None (occurrence: None)
  Receive Date: 20100810
  Receipt Date: 20071001
  Transmission Date: 20110219
  Serious: No
  Sender: FDA-Public Use
  Company Number: US-PFIZER INC-2007082013

PATIENT
  Sex: Female

DRUGS (3)
  1. DETROL [Suspect]
     Indication: POLLAKIURIA
  2. VESICARE [Suspect]
     Indication: POLLAKIURIA
  3. TENIDAP SODIUM [Suspect]
     Indication: POLLAKIURIA

REACTIONS (4)
  - CONSTIPATION [None]
  - DRUG INEFFECTIVE [None]
  - DRY MOUTH [None]
  - NIGHT SWEATS [None]
